FAERS Safety Report 10957392 (Version 1)
Quarter: 2015Q1

REPORT INFORMATION
  Report Type: Spontaneous
  Country: US (occurrence: None)
  Receive Date: 20150325
  Receipt Date: 20150325
  Transmission Date: 20150721
  Serious: Yes (Life-Threatening)
  Sender: FDA-Public Use
  Company Number: None

PATIENT
  Age: 30 Year
  Sex: Female
  Weight: 79.38 kg

DRUGS (3)
  1. SUDAFED [Concomitant]
     Active Substance: PSEUDOEPHEDRINE HYDROCHLORIDE
  2. FLINTSTONES VITAMINS [Concomitant]
  3. AFRIN [Suspect]
     Active Substance: OXYMETAZOLINE
     Indication: PULMONARY CONGESTION
     Dosage: 2-3 SQUIRTS
     Route: 055
     Dates: start: 20150320, end: 20150322

REACTIONS (3)
  - Ageusia [None]
  - Anosmia [None]
  - Burning sensation [None]

NARRATIVE: CASE EVENT DATE: 20150323
